FAERS Safety Report 6013261-2 (Version None)
Quarter: 2008Q4

REPORT INFORMATION
  Report Type: 
  Country: None (occurrence: None)
  Receive Date: 20081218
  Receipt Date: 20081218
  Transmission Date: 20090506
  Serious: No
  Sender: FDA-Public Use
  Company Number: None

PATIENT
  Age: 49 Year
  Sex: Female
  Weight: 138.2 kg

DRUGS (1)
  1. MEDROXYPROGESTERONE [Suspect]
     Indication: UTERINE HAEMORRHAGE
     Dosage: 10MG QD DAY1-10
     Dates: start: 20080707, end: 20080713

REACTIONS (4)
  - CONDITION AGGRAVATED [None]
  - HYPERHIDROSIS [None]
  - PULMONARY EMBOLISM [None]
  - UTERINE HAEMORRHAGE [None]
